FAERS Safety Report 13821919 (Version 1)
Quarter: 2017Q3

REPORT INFORMATION
  Report Type: Spontaneous
  Country: CH (occurrence: CH)
  Receive Date: 20170801
  Receipt Date: 20170801
  Transmission Date: 20171127
  Serious: Yes (Life-Threatening, Hospitalization)
  Sender: FDA-Public Use
  Company Number: CH-009507513-1707CHE011900

PATIENT
  Age: 75 Year
  Sex: Female
  Weight: 76 kg

DRUGS (10)
  1. NOVALGIN (DIPYRONE) [Suspect]
     Active Substance: DIPYRONE
     Dates: start: 20170708, end: 20170710
  2. CO-DIOVAN [Suspect]
     Active Substance: HYDROCHLOROTHIAZIDE\VALSARTAN
     Route: 048
     Dates: end: 20170708
  3. PANTOPRAZOLE [Concomitant]
     Active Substance: PANTOPRAZOLE
     Dosage: 40 MG, QD
     Route: 040
  4. ONDANSETRON [Concomitant]
     Active Substance: ONDANSETRON
     Dosage: 1 DF, UNK
     Dates: start: 20170708, end: 20170708
  5. MORPHINE [Concomitant]
     Active Substance: MORPHINE
     Dosage: 1 DF, UNK
     Dates: start: 20170708, end: 20170708
  6. JANUMET [Suspect]
     Active Substance: METFORMIN HYDROCHLORIDE\SITAGLIPTIN PHOSPHATE
     Route: 048
     Dates: start: 20170511, end: 20170708
  7. LIPANTHYL [Suspect]
     Active Substance: FENOFIBRATE
     Dates: end: 20170708
  8. OXYNORM [Concomitant]
     Active Substance: OXYCODONE HYDROCHLORIDE
     Dosage: 1 DF, UNK
     Dates: start: 20170709
  9. ASS CARDIO SPIRIG HC [Concomitant]
     Dosage: 100 MG, QD
  10. PERFALGAN [Concomitant]
     Active Substance: ACETAMINOPHEN
     Dosage: 2 G, BID
     Dates: start: 20170709

REACTIONS (3)
  - Haemoglobin decreased [Recovering/Resolving]
  - Bicytopenia [Recovered/Resolved]
  - Pancreatitis acute [Recovering/Resolving]

NARRATIVE: CASE EVENT DATE: 20170708
